FAERS Safety Report 13471219 (Version 1)
Quarter: 2017Q2

REPORT INFORMATION
  Report Type: Spontaneous
  Country: US (occurrence: US)
  Receive Date: 20170424
  Receipt Date: 20170424
  Transmission Date: 20170830
  Serious: Yes (Other)
  Sender: FDA-Public Use
  Company Number: US-STRIDES ARCOLAB LIMITED-2017SP002888

PATIENT

DRUGS (2)
  1. GENTAMICIN. [Suspect]
     Active Substance: GENTAMICIN
     Indication: SUBACUTE ENDOCARDITIS
     Dosage: UNK, UNKNOWN
     Route: 065
  2. VANCOMYCIN [Suspect]
     Active Substance: VANCOMYCIN
     Indication: SUBACUTE ENDOCARDITIS
     Dosage: 2 G, PER DAY
     Route: 042

REACTIONS (1)
  - Nephropathy toxic [Unknown]
